FAERS Safety Report 21032655 (Version 1)
Quarter: 2022Q3

REPORT INFORMATION
  Report Type: Spontaneous
  Country: CZ (occurrence: CZ)
  Receive Date: 20220701
  Receipt Date: 20220701
  Transmission Date: 20221027
  Serious: Yes (Hospitalization, Disabling, Other)
  Sender: FDA-Public Use
  Company Number: None

PATIENT
  Age: 71 Year
  Sex: Male
  Weight: 91 kg

DRUGS (13)
  1. KEYTRUDA [Suspect]
     Active Substance: PEMBROLIZUMAB
     Indication: Bronchial carcinoma
     Dosage: 200 MILLIGRAM (MG) IN 3-WEEK INTERVALS, 2 CYCLES WERE ADMINISTERED
     Route: 041
     Dates: start: 20220414, end: 20220505
  2. METHYLDOPA [Concomitant]
     Active Substance: METHYLDOPA
     Dosage: 250 MILLIGRAM, Q12H, 1-0-1
     Route: 048
  3. FENOTEROL HYDROBROMIDE\IPRATROPIUM BROMIDE [Concomitant]
     Active Substance: FENOTEROL HYDROBROMIDE\IPRATROPIUM BROMIDE
     Dosage: 0.25 MILLIGRAM, Q8H, 2-2-2
     Route: 055
  4. MIFLONID BREEZHALER [Concomitant]
     Dosage: 400 MILLIGRAM, Q12H, 1-0-1
     Route: 055
  5. OMEPRAZOLE [Concomitant]
     Active Substance: OMEPRAZOLE
     Dosage: 20 MILLIGRAM, QD, 1-0-0 BEFORE MEAL
     Route: 048
  6. AMLODIPINE BESYLATE\INDAPAMIDE\PERINDOPRIL ARGININE [Concomitant]
     Active Substance: AMLODIPINE BESYLATE\INDAPAMIDE\PERINDOPRIL ARGININE
     Dosage: UNK UNK, QD, 1-0-0
     Route: 048
  7. ROVASYN [Concomitant]
     Dosage: 10 MILLIGRAM, QD, 0-0-1
     Route: 048
  8. ASPIRIN [Concomitant]
     Active Substance: ASPIRIN
     Dosage: 100 MILLIGRAM, QD, 0-1-0
     Route: 048
  9. OXAZEPAM [Concomitant]
     Active Substance: OXAZEPAM
     Dosage: 10 MILLIGRAM, 1-1-0-1
     Route: 048
  10. MIRTAZAPINE [Concomitant]
     Active Substance: MIRTAZAPINE
     Dosage: 30 MILLIGRAM, QD, 0-0-0-1
     Route: 048
  11. SULPIRIDE [Concomitant]
     Active Substance: SULPIRIDE
     Dosage: 50 MILLIGRAM, Q12H, 1-0-0,5
     Route: 048
  12. FORADIL [Concomitant]
     Active Substance: FORMOTEROL FUMARATE
     Dosage: 12 MILLIGRAM, Q12H, 1-0-1
     Route: 055
  13. SERTRALINE HYDROCHLORIDE [Concomitant]
     Active Substance: SERTRALINE HYDROCHLORIDE
     Dosage: 150 MILLIGRAM, QD, 1,5-0-0
     Route: 048

REACTIONS (4)
  - Peripheral motor neuropathy [Recovering/Resolving]
  - Peripheral sensory neuropathy [Recovering/Resolving]
  - Muscular weakness [Recovering/Resolving]
  - Spinocerebellar disorder [Recovering/Resolving]

NARRATIVE: CASE EVENT DATE: 20220512
